FAERS Safety Report 9181712 (Version 1)
Quarter: 2013Q1

REPORT INFORMATION
  Report Type: Spontaneous
  Country: GB (occurrence: GB)
  Receive Date: 20130322
  Receipt Date: 20130322
  Transmission Date: 20140127
  Serious: Yes (Hospitalization, Other)
  Sender: FDA-Public Use
  Company Number: GB-JNJFOC-2000009699GB

PATIENT
  Age: 11 Year
  Sex: Male
  Weight: 36.31 kg

DRUGS (1)
  1. MOTRIN [Suspect]
     Indication: TOOTHACHE
     Dosage: FREQUENCY TEXT: SINGLE DAILY DOSE TEXT: 400 MILLIGRAM, SINGLE DAILY DOSE QTY: 400 MG
     Route: 048
     Dates: start: 19991112, end: 19991112

REACTIONS (4)
  - Haematuria [Recovered/Resolved]
  - Haematochezia [Recovered/Resolved]
  - Coagulopathy [Recovered/Resolved]
  - Haemorrhage [Recovered/Resolved]
